FAERS Safety Report 5563975-3 (Version None)
Quarter: 2007Q4

REPORT INFORMATION
  Report Type: 
  Country: None (occurrence: None)
  Receive Date: 20071217
  Receipt Date: 20071211
  Transmission Date: 20080405
  Serious: Yes (Hospitalization)
  Sender: FDA-Public Use
  Company Number: NO-ELI_LILLY_AND_COMPANY-NO200711003139

PATIENT
  Sex: Male

DRUGS (7)
  1. HUMALOG [Suspect]
     Dosage: 8 U, DAILY (1/D)
     Route: 058
     Dates: start: 20070801, end: 20071001
  2. HUMULIN N [Suspect]
     Dosage: 16 IU, DAILY (1/D)
     Route: 058
     Dates: start: 20070801, end: 20071001
  3. NOVORAPID [Concomitant]
     Dosage: UNK UNK, AS NEEDED
     Route: 058
     Dates: start: 20030101, end: 20070101
  4. METFORMIN HCL [Concomitant]
     Dosage: UNK, UNKNOWN
     Route: 065
     Dates: start: 20030101
  5. NOVOLOG MIX 70/30 [Concomitant]
     Dosage: 8E, ONCE DAILY
     Route: 065
  6. INSULATARD [Concomitant]
     Dosage: 16E, EACH EVENING
     Route: 065
  7. AMARYL [Concomitant]
     Dosage: UNK, UNKNOWN
     Route: 065

REACTIONS (6)
  - CONJUNCTIVITIS ALLERGIC [None]
  - DIZZINESS [None]
  - ERYTHEMA [None]
  - FEELING HOT [None]
  - HYPOAESTHESIA ORAL [None]
  - SYNCOPE [None]
